FAERS Safety Report 5035389-6 (Version None)
Quarter: 2006Q2

REPORT INFORMATION
  Report Type: 
  Country: None (occurrence: None)
  Receive Date: 20060525
  Receipt Date: 20060215
  Transmission Date: 20061013
  Serious: Yes (Hospitalization)
  Sender: FDA-Public Use
  Company Number: 2006-00602

PATIENT
  Age: 57 Year
  Sex: Female

DRUGS (6)
  1. INFED [Suspect]
     Indication: IRON DEFICIENCY ANAEMIA
     Dosage: SEE IMAGE
     Route: 040
     Dates: start: 20060201, end: 20060201
  2. INFED [Suspect]
     Indication: IRON DEFICIENCY ANAEMIA
     Dosage: SEE IMAGE
     Route: 040
     Dates: start: 20060207, end: 20060207
  3. INFED [Suspect]
     Indication: IRON DEFICIENCY ANAEMIA
     Dosage: SEE IMAGE
     Route: 040
     Dates: start: 20060214, end: 20060214
  4. ARANESP [Concomitant]
  5. NIFEREX FORTE (POLYSACCHARIDE-IRON COMPLEX) [Concomitant]
  6. CAPSULE (EXTENDED RELEASE) [Concomitant]

REACTIONS (9)
  - CHILLS [None]
  - DYSPNOEA [None]
  - FLUSHING [None]
  - HYPOTENSION [None]
  - NAUSEA [None]
  - PARAESTHESIA [None]
  - TACHYCARDIA [None]
  - VOMITING [None]
  - WHEEZING [None]
